FAERS Safety Report 5398215-1 (Version None)
Quarter: 2007Q3

REPORT INFORMATION
  Report Type: 
  Country: None (occurrence: None)
  Receive Date: 20070726
  Receipt Date: 20070716
  Transmission Date: 20080115
  Serious: Yes (Other)
  Sender: FDA-Public Use
  Company Number: US-PFIZER INC-2007058990

PATIENT
  Age: 54 Year
  Sex: Male

DRUGS (4)
  1. VORICONAZOLE [Suspect]
     Indication: ANTIFUNGAL PROPHYLAXIS
     Route: 065
  2. THALIDOMIDE [Concomitant]
     Dosage: DAILY DOSE:4000MG
  3. CASPOFUNGIN [Concomitant]
     Dosage: DAILY DOSE:70MG
  4. CASPOFUNGIN [Concomitant]
     Dosage: DAILY DOSE:50MG

REACTIONS (6)
  - HEPATIC FAILURE [None]
  - MULTI-ORGAN FAILURE [None]
  - PLEURAL EFFUSION [None]
  - RESPIRATORY FAILURE [None]
  - VENOOCCLUSIVE LIVER DISEASE [None]
  - ZYGOMYCOSIS [None]
